FAERS Safety Report 23356780 (Version 1)
Quarter: 2023Q4

REPORT INFORMATION
  Report Type: Spontaneous
  Country: US (occurrence: None)
  Receive Date: 20231229
  Receipt Date: 20231229
  Transmission Date: 20240110
  Serious: No
  Sender: FDA-Public Use
  Company Number: None

PATIENT
  Age: 69 Year
  Sex: Male
  Weight: 105.75 kg

DRUGS (12)
  1. AMOXICILLIN\CLAVULANATE POTASSIUM [Suspect]
     Active Substance: AMOXICILLIN\CLAVULANATE POTASSIUM
     Indication: Diverticulitis
     Dosage: OTHER QUANTITY : 1 TABLET(S);?FREQUENCY : TWICE A DAY;?
     Route: 048
     Dates: start: 20231214, end: 20231224
  2. WARFARIN [Concomitant]
     Active Substance: WARFARIN
  3. FESOTERODINE [Concomitant]
     Active Substance: FESOTERODINE
  4. ALFUZOSIN [Concomitant]
     Active Substance: ALFUZOSIN
  5. METOPROLOL [Concomitant]
     Active Substance: METOPROLOL
  6. SIMVASTATIN [Concomitant]
     Active Substance: SIMVASTATIN
  7. VERAPAMIL [Concomitant]
     Active Substance: VERAPAMIL HYDROCHLORIDE
  8. FAMOTIDINE [Concomitant]
     Active Substance: FAMOTIDINE
  9. FESOTERODINE [Concomitant]
     Active Substance: FESOTERODINE
  10. Multi-vitamain [Concomitant]
  11. PROBIOTICS NOS [Concomitant]
     Active Substance: PROBIOTICS NOS
  12. Ubiquinol (co-Q10) [Concomitant]

REACTIONS (2)
  - Dry mouth [None]
  - Tongue haemorrhage [None]

NARRATIVE: CASE EVENT DATE: 20231219
